FAERS Safety Report 9686691 (Version 1)
Quarter: 2013Q4

REPORT INFORMATION
  Report Type: Spontaneous
  Country: US (occurrence: US)
  Receive Date: 20131113
  Receipt Date: 20131113
  Transmission Date: 20140711
  Serious: No
  Sender: FDA-Public Use
  Company Number: US-CUBIST PHARMACEUTICAL, INC.-2013CBST000474

PATIENT
  Sex: 0

DRUGS (3)
  1. CUBICIN [Suspect]
     Indication: ARTHRITIS INFECTIVE
     Dosage: UNK UNK, 30 MINUTE INFUSION
     Route: 042
  2. CUBICIN [Suspect]
     Indication: OFF LABEL USE
     Dosage: UNK UNK, 2 MINUTE PUSH
     Route: 042
  3. CUBICIN [Suspect]
     Dosage: UNK UNK, 30 MINUTE INFUSION
     Route: 042

REACTIONS (3)
  - Discomfort [Unknown]
  - Flushing [Unknown]
  - Headache [Unknown]
